FAERS Safety Report 6421401-6 (Version None)
Quarter: 2009Q4

REPORT INFORMATION
  Report Type: 
  Country: None (occurrence: None)
  Receive Date: 20091030
  Receipt Date: 20091026
  Transmission Date: 20100525
  Serious: Yes (Other)
  Sender: FDA-Public Use
  Company Number: ES-BAYER-200935412GPV

PATIENT
  Age: 53 Year
  Sex: Male

DRUGS (4)
  1. NEXAVAR [Suspect]
     Indication: HEPATIC ADENOMA
     Route: 048
     Dates: start: 20090716, end: 20091002
  2. INSULIN [Concomitant]
     Indication: DIABETES MELLITUS
     Route: 058
  3. PROPRANOLOL [Concomitant]
     Indication: GASTRIC VARICES HAEMORRHAGE
     Route: 048
  4. ISOSORBIDE MONONITRATE [Concomitant]
     Indication: GASTRIC VARICES HAEMORRHAGE
     Route: 048

REACTIONS (1)
  - MYOSITIS [None]
